FAERS Safety Report 7003599-4 (Version None)
Quarter: 2010Q3

REPORT INFORMATION
  Report Type: 
  Country: None (occurrence: None)
  Receive Date: 20100920
  Receipt Date: 20100913
  Transmission Date: 20110219
  Serious: Yes (Other)
  Sender: FDA-Public Use
  Company Number: US-AMGEN-KDL431523

PATIENT
  Sex: Female

DRUGS (2)
  1. ENBREL [Suspect]
     Indication: RHEUMATOID ARTHRITIS
     Route: 058
     Dates: start: 20070510
  2. METHOTREXATE [Concomitant]
     Route: 048

REACTIONS (5)
  - ARTHROPOD BITE [None]
  - CONSTIPATION [None]
  - INCREASED TENDENCY TO BRUISE [None]
  - LOCALISED INFECTION [None]
  - MEMORY IMPAIRMENT [None]
